FAERS Safety Report 9412307 (Version 1)
Quarter: 2013Q3

REPORT INFORMATION
  Report Type: Spontaneous
  Country: US (occurrence: US)
  Receive Date: 20130722
  Receipt Date: 20130722
  Transmission Date: 20140515
  Serious: Yes (Other)
  Sender: FDA-Public Use
  Company Number: US-TARO PHARMACEUTICALS U.S.A., INC-2013SUN01056

PATIENT
  Age: 55 Year
  Sex: Female

DRUGS (2)
  1. CARBAMAZEPINE [Suspect]
     Indication: CONVULSION
     Dosage: UNK
     Route: 065
  2. CARBAMAZEPINE [Suspect]
     Dosage: UNK

REACTIONS (3)
  - Pemphigoid [Recovering/Resolving]
  - Blood immunoglobulin E increased [Recovering/Resolving]
  - Eosinophilia [Recovered/Resolved]
